FAERS Safety Report 5761053-1 (Version None)
Quarter: 2008Q2

REPORT INFORMATION
  Report Type: 
  Country: None (occurrence: None)
  Receive Date: 20080606
  Receipt Date: 20080527
  Transmission Date: 20081010
  Serious: Yes (Hospitalization)
  Sender: FDA-Public Use
  Company Number: DE-ABBOTT-08P-062-0453971-00

PATIENT
  Sex: Female

DRUGS (2)
  1. HUMIRA [Suspect]
     Indication: COLITIS MICROSCOPIC
     Route: 058
     Dates: start: 20071102
  2. AZATHIOPRINE [Concomitant]
     Indication: COLITIS MICROSCOPIC

REACTIONS (4)
  - ABDOMINAL DISCOMFORT [None]
  - ANOREXIA [None]
  - FATIGUE [None]
  - THROMBOSIS [None]
